FAERS Safety Report 4617960-6 (Version None)
Quarter: 2005Q1

REPORT INFORMATION
  Report Type: 
  Country: None (occurrence: None)
  Receive Date: 20050322
  Receipt Date: 20050309
  Transmission Date: 20050727
  Serious: Yes (Other)
  Sender: FDA-Public Use
  Company Number: 200510234BCC

PATIENT
  Age: 77 Year
  Sex: Female
  Weight: 63.5036 kg

DRUGS (10)
  1. ALEVE [Suspect]
     Indication: ARTHRITIS
     Dosage: 220 MG, HS, ORAL; 220 MG, ONCE, ORAL; 220 MG, ORAL
     Route: 048
  2. ALEVE [Suspect]
     Indication: BURSITIS
     Dosage: 220 MG, HS, ORAL; 220 MG, ONCE, ORAL; 220 MG, ORAL
     Route: 048
  3. ALEVE [Suspect]
     Indication: ARTHRITIS
     Dosage: 220 MG, HS, ORAL; 220 MG, ONCE, ORAL; 220 MG, ORAL
     Route: 048
     Dates: start: 20041101
  4. ALEVE [Suspect]
     Indication: BURSITIS
     Dosage: 220 MG, HS, ORAL; 220 MG, ONCE, ORAL; 220 MG, ORAL
     Route: 048
     Dates: start: 20041101
  5. CALAN [Concomitant]
  6. INDERAL [Concomitant]
  7. FLEXERIL [Concomitant]
  8. PROPACET 100 [Concomitant]
  9. TAVIST ALLERGY/SINUS [Concomitant]
  10. VIOXX [Concomitant]

REACTIONS (6)
  - ASTHENIA [None]
  - BLOOD GLUCOSE DECREASED [None]
  - BLOOD PRESSURE INCREASED [None]
  - FEELING ABNORMAL [None]
  - HYPONATRAEMIA [None]
  - TREMOR [None]
